FAERS Safety Report 14105506 (Version 1)
Quarter: 2017Q4

REPORT INFORMATION
  Report Type: Spontaneous
  Country: FR (occurrence: FR)
  Receive Date: 20171018
  Receipt Date: 20171018
  Transmission Date: 20180321
  Serious: Yes (Other)
  Sender: FDA-Public Use
  Company Number: FR-009507513-1710FRA005013

PATIENT

DRUGS (1)
  1. ISENTRESS [Suspect]
     Active Substance: RALTEGRAVIR POTASSIUM
     Dosage: 6 SACHETS PER DAY
     Route: 048

REACTIONS (4)
  - Drug prescribing error [Unknown]
  - Gastrointestinal tube insertion [Unknown]
  - Dysphagia [Unknown]
  - Product use issue [Unknown]
